FAERS Safety Report 18264505 (Version 2)
Quarter: 2020Q3

REPORT INFORMATION
  Report Type: Spontaneous
  Country: US (occurrence: US)
  Receive Date: 20200914
  Receipt Date: 20200921
  Transmission Date: 20201103
  Serious: No
  Sender: FDA-Public Use
  Company Number: US-PFIZER INC-2020352649

PATIENT
  Age: 63 Year
  Sex: Female
  Weight: 103.87 kg

DRUGS (2)
  1. NEURONTIN [Suspect]
     Active Substance: GABAPENTIN
     Dosage: 300 MG , AT NIGHT
  2. NEURONTIN [Suspect]
     Active Substance: GABAPENTIN
     Dosage: 100 MG (DOCTOR GAVE HER A 100MG TABLET INSTEAD OF 300MG)

REACTIONS (2)
  - Product prescribing error [Unknown]
  - Hangover [Unknown]
